FAERS Safety Report 21707557 (Version 1)
Quarter: 2022Q4

REPORT INFORMATION
  Report Type: Spontaneous
  Country: CN (occurrence: CN)
  Receive Date: 20221209
  Receipt Date: 20221209
  Transmission Date: 20230113
  Serious: Yes (Disabling, Other)
  Sender: FDA-Public Use
  Company Number: CN-PFIZER INC-PV202200116908

PATIENT
  Age: 47 Year
  Sex: Male

DRUGS (2)
  1. METHOTREXATE SODIUM [Suspect]
     Active Substance: METHOTREXATE SODIUM
     Indication: Acute lymphocytic leukaemia
     Dosage: 3.500 G, 1X/DAY
     Route: 041
     Dates: start: 20221115, end: 20221115
  2. FLUMATINIB MESYLATE [Concomitant]
     Active Substance: FLUMATINIB MESYLATE
     Indication: Acute lymphocytic leukaemia
     Dosage: 0.600 G, 1X/DAY
     Route: 048
     Dates: start: 20221115, end: 20221117

REACTIONS (5)
  - Renal impairment [Recovering/Resolving]
  - Urine output decreased [Unknown]
  - Drug level increased [Unknown]
  - Gastrointestinal mucosal disorder [Unknown]
  - Abdominal discomfort [Recovering/Resolving]

NARRATIVE: CASE EVENT DATE: 20221116
